FAERS Safety Report 19229719 (Version 5)
Quarter: 2021Q4

REPORT INFORMATION
  Report Type: Report from Study
  Country: US (occurrence: US)
  Receive Date: 20210506
  Receipt Date: 20211204
  Transmission Date: 20220303
  Serious: Yes (Other)
  Sender: FDA-Public Use
  Company Number: NVSC2021US101764

PATIENT
  Sex: Female

DRUGS (2)
  1. COSENTYX [Suspect]
     Active Substance: SECUKINUMAB
     Indication: Psoriatic arthropathy
     Dosage: 150 MG, QW
     Route: 058
  2. COSENTYX [Suspect]
     Active Substance: SECUKINUMAB
     Indication: Ankylosing spondylitis
     Dosage: 300 MG, QMO (DOSE INCREASED)
     Route: 065

REACTIONS (9)
  - Psoriatic arthropathy [Unknown]
  - Ankylosing spondylitis [Unknown]
  - Vaginal haemorrhage [Unknown]
  - Vulvovaginal pain [Unknown]
  - Fungal infection [Unknown]
  - Skin mass [Unknown]
  - Candida infection [Unknown]
  - Device malfunction [Unknown]
  - Therapy non-responder [Unknown]
